FAERS Safety Report 17575251 (Version 1)
Quarter: 2020Q1

REPORT INFORMATION
  Report Type: Spontaneous
  Country: GB (occurrence: GB)
  Receive Date: 20200324
  Receipt Date: 20200324
  Transmission Date: 20200409
  Serious: Yes (Other)
  Sender: FDA-Public Use
  Company Number: NVSC2020GB077275

PATIENT
  Age: 5 Month
  Sex: Female
  Weight: 9.97 kg

DRUGS (1)
  1. CLINDAMYCIN HYDROCHLORIDE. [Suspect]
     Active Substance: CLINDAMYCIN HYDROCHLORIDE
     Indication: MASTITIS
     Dosage: 600 MG
     Route: 048
     Dates: start: 20191209

REACTIONS (4)
  - Constipation [Recovered/Resolved]
  - Candida infection [Recovered/Resolved]
  - Diarrhoea [Recovered/Resolved]
  - Abdominal pain [Recovered/Resolved]

NARRATIVE: CASE EVENT DATE: 20191209
